FAERS Safety Report 21298603 (Version 1)
Quarter: 2022Q3

REPORT INFORMATION
  Report Type: Spontaneous
  Country: US (occurrence: None)
  Receive Date: 20220904
  Receipt Date: 20220904
  Transmission Date: 20221027
  Serious: Yes (Other)
  Sender: FDA-Public Use
  Company Number: None

PATIENT
  Age: 63 Year
  Sex: Female
  Weight: 80.1 kg

DRUGS (6)
  1. QULIPTA [Suspect]
     Active Substance: ATOGEPANT
     Indication: Ophthalmic migraine
     Dosage: OTHER QUANTITY : 1 TABLET(S);?
     Route: 048
     Dates: start: 20220818, end: 20220826
  2. LEVOTHYROXINE [Concomitant]
     Active Substance: LEVOTHYROXINE
  3. COLESTIPOL [Concomitant]
     Active Substance: COLESTIPOL
  4. proprananolol [Concomitant]
  5. VITAMINS [Concomitant]
     Active Substance: VITAMINS
  6. VITAMIN D [Concomitant]
     Active Substance: VITAMIN D NOS

REACTIONS (4)
  - Fatigue [None]
  - Nausea [None]
  - Feeling abnormal [None]
  - Impaired work ability [None]

NARRATIVE: CASE EVENT DATE: 20220825
